FAERS Safety Report 6128124-1 (Version None)
Quarter: 2009Q1

REPORT INFORMATION
  Report Type: 
  Country: None (occurrence: None)
  Receive Date: 20090320
  Receipt Date: 20090320
  Transmission Date: 20090719
  Serious: Yes (Other)
  Sender: FDA-Public Use
  Company Number: None

PATIENT
  Age: 36 Year
  Sex: Female
  Weight: 112.0385 kg

DRUGS (2)
  1. LEVAQUIN [Suspect]
     Indication: BRONCHITIS
     Dosage: 1 TABLET 1 DAILY PO
     Route: 048
     Dates: start: 20081007, end: 20081010
  2. LEVAQUIN [Suspect]
     Indication: SINUSITIS
     Dosage: 1 TABLET 1 DAILY PO
     Route: 048
     Dates: start: 20081007, end: 20081010

REACTIONS (7)
  - ARTHRALGIA [None]
  - COMPLEX REGIONAL PAIN SYNDROME [None]
  - DEPRESSION [None]
  - GENERALISED ANXIETY DISORDER [None]
  - NAUSEA [None]
  - TENDONITIS [None]
  - VOMITING [None]
